FAERS Safety Report 19699049 (Version 6)
Quarter: 2022Q3

REPORT INFORMATION
  Report Type: Report from Study
  Country: US (occurrence: US)
  Receive Date: 20210813
  Receipt Date: 20220914
  Transmission Date: 20221027
  Serious: No
  Sender: FDA-Public Use
  Company Number: NVSC2021US176626

PATIENT
  Age: 55 Year
  Sex: Female

DRUGS (1)
  1. KESIMPTA [Suspect]
     Active Substance: OFATUMUMAB
     Indication: Multiple sclerosis
     Dosage: 20 MG (LOADING DOSE) BENEATH THE SKIN, USUALLY VIA INJECTION
     Route: 058
     Dates: start: 20210718

REACTIONS (7)
  - Musculoskeletal stiffness [Recovered/Resolved]
  - Amnesia [Unknown]
  - Chills [Recovered/Resolved]
  - Injection site extravasation [Unknown]
  - Incorrect dose administered [Unknown]
  - Accidental exposure to product [Unknown]
  - Wrong technique in device usage process [Unknown]

NARRATIVE: CASE EVENT DATE: 20210718
